FAERS Safety Report 5100983-0 (Version None)
Quarter: 2006Q3

REPORT INFORMATION
  Report Type: 
  Country: None (occurrence: None)
  Receive Date: 20060911
  Receipt Date: 20060829
  Transmission Date: 20061208
  Serious: Yes (Other)
  Sender: FDA-Public Use
  Company Number: PHEH2006US11046

PATIENT
  Age: 59 Year
  Sex: Female
  Weight: 53.061 kg

DRUGS (12)
  1. ACYCLOVIR [Concomitant]
     Indication: ANTIVIRAL PROPHYLAXIS
     Dosage: 800 MG, BID
     Route: 048
  2. ATIVAN [Concomitant]
     Indication: NAUSEA
     Dosage: UNK, PRN
     Route: 048
  3. VITAMIN B6 [Concomitant]
     Indication: NEUROPATHY PERIPHERAL
     Route: 048
  4. MIRALAX [Concomitant]
     Indication: CONSTIPATION
     Dosage: UNK, PRN
     Route: 048
  5. COLACE [Concomitant]
     Indication: CONSTIPATION
     Dosage: 100 MG, PRN
     Route: 048
  6. TUMS [Concomitant]
     Indication: MINERAL SUPPLEMENTATION
     Route: 048
  7. GLEEVEC [Suspect]
     Indication: ACUTE LYMPHOCYTIC LEUKAEMIA RECURRENT
     Dosage: 400 MG, BID
     Route: 048
     Dates: start: 20060318
  8. AMILORIDE [Concomitant]
     Indication: HYPOKALAEMIA
     Dosage: 5 MG, QD
     Route: 048
  9. IPRATROPIUM BROMIDE W/SALBUTAMOL [Concomitant]
     Indication: WHEEZING
  10. PROTONIX [Concomitant]
     Indication: GASTROOESOPHAGEAL REFLUX DISEASE
     Dosage: 40 MG, QD
     Route: 048
     Dates: start: 20060512
  11. POTASSIUM [Concomitant]
     Indication: HYPOKALAEMIA
     Dosage: 20 MEQ, QD
     Route: 048
  12. TRIAZOLE DERIVATIVES [Suspect]
     Indication: FUNGAL INFECTION
     Dosage: 200 MG, QID
     Route: 048
     Dates: start: 20051215, end: 20060814

REACTIONS (7)
  - BLOOD ALKALINE PHOSPHATASE INCREASED [None]
  - BLOOD BILIRUBIN INCREASED [None]
  - CHOLECYSTITIS [None]
  - CHOLELITHIASIS [None]
  - GRAFT VERSUS HOST DISEASE [None]
  - HEPATOMEGALY [None]
  - TENDERNESS [None]
